FAERS Safety Report 5098924-8 (Version None)
Quarter: 2006Q3

REPORT INFORMATION
  Report Type: 
  Country: None (occurrence: None)
  Receive Date: 20060907
  Receipt Date: 20060905
  Transmission Date: 20061208
  Serious: Yes (Other)
  Sender: FDA-Public Use
  Company Number: 200614899EU

PATIENT
  Age: 41 Year
  Sex: Female

DRUGS (3)
  1. NICORETTE [Suspect]
     Dosage: 2MG TWENTY TIMES PER DAY
     Route: 002
     Dates: start: 20010101
  2. EUGYNON [Concomitant]
     Route: 048
     Dates: start: 19980101
  3. LEVOTHYROXINE SODIUM [Concomitant]
     Indication: THYROID DISORDER

REACTIONS (2)
  - DEPENDENCE [None]
  - INCORRECT DRUG ADMINISTRATION DURATION [None]
